FAERS Safety Report 20729043 (Version 2)
Quarter: 2022Q2

REPORT INFORMATION
  Report Type: Spontaneous
  Country: US (occurrence: US)
  Receive Date: 20220420
  Receipt Date: 20220425
  Transmission Date: 20220720
  Serious: Yes (Hospitalization, Other)
  Sender: FDA-Public Use
  Company Number: US-Blueprint Medicines Corporation-SP-US-2022-001088

PATIENT
  Age: 58 Year
  Sex: Male

DRUGS (2)
  1. AYVAKIT [Suspect]
     Active Substance: AVAPRITINIB
     Indication: Gastrointestinal stromal tumour
     Route: 048
     Dates: start: 20191015, end: 20220403
  2. AYVAKIT [Suspect]
     Active Substance: AVAPRITINIB
     Route: 048
     Dates: start: 20191015, end: 20220403

REACTIONS (9)
  - Full blood count abnormal [Unknown]
  - Heart rate decreased [Unknown]
  - Blood creatine abnormal [Unknown]
  - Neoplasm [Unknown]
  - Neoplasm progression [Unknown]
  - Injection site bruising [Unknown]
  - Cardiac disorder [Unknown]
  - Blood creatine decreased [Unknown]
  - Drug ineffective [Unknown]

NARRATIVE: CASE EVENT DATE: 20220403
